FAERS Safety Report 7480348-7 (Version None)
Quarter: 2011Q2

REPORT INFORMATION
  Report Type: 
  Country: None (occurrence: None)
  Receive Date: 20110504
  Receipt Date: 20110421
  Transmission Date: 20111010
  Serious: Yes (Other)
  Sender: FDA-Public Use
  Company Number: TPA2011A01848

PATIENT

DRUGS (1)
  1. ULORIC [Suspect]
     Dosage: PER ORAL
     Route: 048

REACTIONS (1)
  - CARDIAC FAILURE [None]
